FAERS Safety Report 6962653-3 (Version None)
Quarter: 2010Q3

REPORT INFORMATION
  Report Type: 
  Country: None (occurrence: None)
  Receive Date: 20100902
  Receipt Date: 20100825
  Transmission Date: 20110219
  Serious: Yes (Hospitalization)
  Sender: FDA-Public Use
  Company Number: US-SANOFI-AVENTIS-2010SA051685

PATIENT
  Age: 71 Year
  Sex: Female

DRUGS (4)
  1. LANTUS [Suspect]
     Indication: TYPE 2 DIABETES MELLITUS
     Dosage: DOSE:42 UNIT(S)
     Route: 058
     Dates: start: 20100201
  2. SOLOSTAR [Suspect]
     Indication: TYPE 2 DIABETES MELLITUS
     Dates: start: 20100201
  3. APIDRA [Suspect]
     Indication: TYPE 2 DIABETES MELLITUS
     Dosage: 2 UNITS IN THE MORNING, 4 UNITS AT NOON AND 6 UNITS IN THE EVENING WITH MEALS
     Route: 058
     Dates: start: 20100201
  4. POTASSIUM [Suspect]
     Route: 065

REACTIONS (1)
  - BLOOD POTASSIUM INCREASED [None]
